FAERS Safety Report 18453027 (Version 1)
Quarter: 2020Q4

REPORT INFORMATION
  Report Type: Spontaneous
  Country: GB (occurrence: GB)
  Receive Date: 20201102
  Receipt Date: 20201102
  Transmission Date: 20210114
  Serious: Yes (Other)
  Sender: FDA-Public Use
  Company Number: GB-PFIZER INC-2020420211

PATIENT
  Age: 79 Year
  Sex: Female

DRUGS (11)
  1. SENNAE FOLIUM [Concomitant]
     Dosage: UNK
  2. LINEZOLID. [Suspect]
     Active Substance: LINEZOLID
     Indication: CELLULITIS
     Dosage: 600 MG
     Route: 048
     Dates: start: 20200924, end: 20200929
  3. PREDNISOLONE. [Concomitant]
     Active Substance: PREDNISOLONE
     Dosage: UNK
  4. SOLIFENACIN [Concomitant]
     Active Substance: SOLIFENACIN
     Dosage: UNK
  5. AMLODIPINE [Concomitant]
     Active Substance: AMLODIPINE BESYLATE
     Dosage: UNK
  6. LISINOPRIL. [Concomitant]
     Active Substance: LISINOPRIL
     Dosage: UNK
  7. OMEPRAZOLE. [Concomitant]
     Active Substance: OMEPRAZOLE
     Dosage: UNK
  8. SIMVASTATIN. [Concomitant]
     Active Substance: SIMVASTATIN
     Dosage: UNK
  9. FUROSEMIDE SODIUM [Concomitant]
     Active Substance: FUROSEMIDE SODIUM
     Dosage: UNK
  10. APIXABAN [Concomitant]
     Active Substance: APIXABAN
     Dosage: UNK
  11. COTRIMOXAZOLE [Concomitant]
     Active Substance: SULFAMETHOXAZOLE\TRIMETHOPRIM
     Dosage: UNK

REACTIONS (1)
  - Hallucination, visual [Recovered/Resolved]

NARRATIVE: CASE EVENT DATE: 20200925
